FAERS Safety Report 6370943-0 (Version None)
Quarter: 2009Q3

REPORT INFORMATION
  Report Type: 
  Country: None (occurrence: None)
  Receive Date: 20090923
  Receipt Date: 20080410
  Transmission Date: 20100115
  Serious: Yes (Hospitalization)
  Sender: FDA-Public Use
  Company Number: US-ASTRAZENECA-2006UW22639

PATIENT
  Age: 698 Month
  Sex: Male
  Weight: 68 kg

DRUGS (25)
  1. SEROQUEL [Suspect]
     Indication: BIPOLAR DISORDER
     Dosage: 25 MG - 300 MG
     Route: 048
     Dates: start: 20020920
  2. SEROQUEL [Suspect]
     Indication: ANXIETY
     Dosage: 25 MG - 300 MG
     Route: 048
     Dates: start: 20020920
  3. SEROQUEL [Suspect]
     Indication: INSOMNIA
     Dosage: 25 MG - 300 MG
     Route: 048
     Dates: start: 20020920
  4. SEROQUEL [Suspect]
     Indication: NERVOUSNESS
     Dosage: 25 MG - 300 MG
     Route: 048
     Dates: start: 20020920
  5. SEROQUEL [Suspect]
     Route: 048
     Dates: start: 20030101, end: 20060201
  6. SEROQUEL [Suspect]
     Route: 048
     Dates: start: 20030101, end: 20060201
  7. SEROQUEL [Suspect]
     Route: 048
     Dates: start: 20030101, end: 20060201
  8. SEROQUEL [Suspect]
     Route: 048
     Dates: start: 20030101, end: 20060201
  9. GEODON [Concomitant]
     Dosage: FREQUENCY: UNKNOWN
  10. RISPERDAL [Concomitant]
     Dosage: FREQUENCY: UNKNOWN
  11. MIRTAZAPINE [Concomitant]
  12. RESTORIL [Concomitant]
  13. LIPITOR [Concomitant]
  14. HUMINSULIN [Concomitant]
  15. LANTUS [Concomitant]
  16. ZYPREXA [Concomitant]
  17. ATENOLOL [Concomitant]
  18. MORPHINE [Concomitant]
  19. ABILIFY [Concomitant]
  20. CLONAZEPAM [Concomitant]
  21. AMBIEN [Concomitant]
  22. EFFEXOR [Concomitant]
  23. VISTARIL [Concomitant]
  24. ARTANE [Concomitant]
  25. DOXEPIN HCL [Concomitant]

REACTIONS (2)
  - DIABETES MELLITUS [None]
  - VISION BLURRED [None]
